FAERS Safety Report 26113247 (Version 1)
Quarter: 2025Q4

REPORT INFORMATION
  Report Type: Spontaneous
  Country: CN (occurrence: None)
  Receive Date: 20251202
  Receipt Date: 20251202
  Transmission Date: 20260118
  Serious: Yes (Other)
  Sender: ORGANON
  Company Number: CN-ORGANON-O2511CHN001239

PATIENT
  Age: 47 Year
  Sex: Female

DRUGS (5)
  1. REMERON SOLTAB [Suspect]
     Active Substance: MIRTAZAPINE
     Indication: Insomnia
     Dosage: UNK
  2. REMERON SOLTAB [Suspect]
     Active Substance: MIRTAZAPINE
     Indication: Insomnia
     Dosage: QUARTER OF ONE TABLET EACH TIME
  3. REMERON SOLTAB [Suspect]
     Active Substance: MIRTAZAPINE
     Dosage: DECREASED FROM 1/4 TABLET TO 1/8 TABLET
  4. REMERON SOLTAB [Suspect]
     Active Substance: MIRTAZAPINE
     Dosage: THEN DECREASED TO 1/16 TABLET
  5. REMERON SOLTAB [Suspect]
     Active Substance: MIRTAZAPINE
     Dosage: TREATMENT CONTINUED WITH 1/4 TABLET

REACTIONS (8)
  - Hypothyroidism [Unknown]
  - Abdominal operation [Recovered/Resolved]
  - Abdominal discomfort [Unknown]
  - Arthralgia [Unknown]
  - Blood glucose increased [Unknown]
  - Wrong technique in product usage process [Unknown]
  - Intentional underdose [Unknown]
  - Product use in unapproved indication [Unknown]
